FAERS Safety Report 8538135-4 (Version None)
Quarter: 2012Q3

REPORT INFORMATION
  Report Type: 
  Country: None (occurrence: None)
  Receive Date: 20120725
  Receipt Date: 20120717
  Transmission Date: 20120928
  Serious: Yes (Hospitalization)
  Sender: FDA-Public Use
  Company Number: CH-SANOFI-AVENTIS-2012SA051306

PATIENT
  Age: 76 Year
  Sex: Female

DRUGS (11)
  1. MARCUMAR [Suspect]
     Route: 048
     Dates: end: 20120501
  2. CALCIMAGON-D3 [Concomitant]
     Route: 048
  3. TORSEMIDE [Concomitant]
     Route: 048
     Dates: end: 20120501
  4. PRAVASTATIN [Concomitant]
     Route: 048
  5. NEXIUM [Concomitant]
     Route: 048
     Dates: end: 20120501
  6. CLOPIDOGREL [Interacting]
     Route: 048
  7. METOPROLOL TARTRATE [Concomitant]
     Route: 048
  8. ZESTRIL [Concomitant]
     Route: 048
  9. SEROQUEL [Concomitant]
     Route: 048
  10. ASPIRIN [Interacting]
     Route: 048
  11. ESCITALOPRAM [Interacting]
     Indication: DEPRESSION
     Route: 048

REACTIONS (4)
  - DRUG INTERACTION [None]
  - INTERNATIONAL NORMALISED RATIO INCREASED [None]
  - UPPER GASTROINTESTINAL HAEMORRHAGE [None]
  - HAEMATEMESIS [None]
